FAERS Safety Report 8452123-8 (Version None)
Quarter: 2012Q2

REPORT INFORMATION
  Report Type: 
  Country: None (occurrence: None)
  Receive Date: 20120620
  Receipt Date: 20120611
  Transmission Date: 20120825
  Serious: Yes (Hospitalization)
  Sender: FDA-Public Use
  Company Number: CA-GLAXOSMITHKLINE-A0980695A

PATIENT
  Sex: Female

DRUGS (1)
  1. PAXIL [Suspect]
     Indication: PRODUCT USED FOR UNKNOWN INDICATION
     Dosage: 20MG IN THE MORNING
     Route: 065
     Dates: start: 19950101, end: 20110627

REACTIONS (8)
  - WITHDRAWAL SYNDROME [None]
  - SUICIDAL IDEATION [None]
  - DEPENDENCE [None]
  - SUICIDE ATTEMPT [None]
  - INTENTIONAL SELF-INJURY [None]
  - OVERDOSE [None]
  - PAIN [None]
  - DRUG INEFFECTIVE [None]
